FAERS Safety Report 9293866 (Version 1)
Quarter: 2013Q1

REPORT INFORMATION
  Report Type: Spontaneous
  Country: US (occurrence: None)
  Receive Date: 20121217
  Receipt Date: 20121217
  Transmission Date: 20140127
  Serious: Yes (Other)
  Sender: FDA-Public Use
  Company Number: 066695

PATIENT
  Age: 69 Year
  Sex: Female

DRUGS (1)
  1. ROTIGOTINE [Suspect]
     Indication: RESTLESS LEGS SYNDROME
     Dosage: ( TO UNKNOWN)

REACTIONS (1)
  - Restless legs syndrome [None]
